FAERS Safety Report 8369705-4 (Version None)
Quarter: 2012Q2

REPORT INFORMATION
  Report Type: 
  Country: None (occurrence: None)
  Receive Date: 20120518
  Receipt Date: 20120509
  Transmission Date: 20120825
  Serious: Yes (Other)
  Sender: FDA-Public Use
  Company Number: CA-BRISTOL-MYERS SQUIBB COMPANY-16590887

PATIENT
  Age: 82 Year
  Sex: Female

DRUGS (13)
  1. PANTOPRAZOLE [Concomitant]
  2. ORENCIA [Suspect]
     Indication: RHEUMATOID ARTHRITIS
     Dosage: SECOND INFUSION ON 28-FEB-2012
     Route: 042
     Dates: start: 20120214
  3. VITAMIN D [Concomitant]
  4. FOLIC ACID [Concomitant]
  5. ATENOLOL [Concomitant]
  6. WARFARIN SODIUM [Concomitant]
  7. FENOFIBRATE [Concomitant]
  8. TYLENOL W/ CODEINE NO. 3 [Concomitant]
  9. BACLOFEN [Concomitant]
  10. ALENDRONATE SODIUM [Concomitant]
  11. FELODIPINE [Concomitant]
  12. FUROSEMIDE [Concomitant]
  13. HYDROXYCHLOROQUINE SULFATE [Concomitant]

REACTIONS (2)
  - CARDIAC FAILURE CONGESTIVE [None]
  - PNEUMONIA [None]
